FAERS Safety Report 13551773 (Version 2)
Quarter: 2017Q3

REPORT INFORMATION
  Report Type: Spontaneous
  Country: US (occurrence: US)
  Receive Date: 20170516
  Receipt Date: 20170816
  Transmission Date: 20171127
  Serious: No
  Sender: FDA-Public Use
  Company Number: US-009507513-1705USA000964

PATIENT
  Age: 21 Year
  Sex: Female
  Weight: 51.25 kg

DRUGS (1)
  1. NEXPLANON [Suspect]
     Active Substance: ETONOGESTREL
     Indication: CONTRACEPTION
     Dosage: 1 DF, ONE ROD/ ONCE PER THREE YEARS
     Route: 059
     Dates: start: 20170412

REACTIONS (2)
  - Implant site pain [Recovering/Resolving]
  - Implant site irritation [Unknown]

NARRATIVE: CASE EVENT DATE: 201704
